FAERS Safety Report 11053494 (Version 1)
Quarter: 2015Q2

REPORT INFORMATION
  Report Type: Spontaneous
  Country: US (occurrence: US)
  Receive Date: 20150421
  Receipt Date: 20150421
  Transmission Date: 20150821
  Serious: Yes (Hospitalization)
  Sender: FDA-Public Use
  Company Number: US-ELI_LILLY_AND_COMPANY-US201504003422

PATIENT
  Age: 81 Year
  Sex: Male

DRUGS (4)
  1. CIALIS [Suspect]
     Active Substance: TADALAFIL
     Indication: CARDIOVASCULAR DISORDER
  2. CIALIS [Suspect]
     Active Substance: TADALAFIL
     Indication: RADIATION INJURY
     Dosage: UNK
     Dates: start: 201409
  3. COREG [Concomitant]
     Active Substance: CARVEDILOL
     Dosage: UNK, UNKNOWN
     Route: 065
  4. BABY ASPIRIN [Concomitant]
     Active Substance: ASPIRIN
     Dosage: UNK, UNKNOWN
     Route: 065

REACTIONS (8)
  - Thrombosis [Unknown]
  - Urinary tract obstruction [Unknown]
  - Cystitis [Unknown]
  - Micturition disorder [Unknown]
  - Nephrolithiasis [Unknown]
  - Wrong technique in drug usage process [Unknown]
  - Diarrhoea [Unknown]
  - Off label use [Unknown]
